FAERS Safety Report 17785338 (Version 1)
Quarter: 2020Q2

REPORT INFORMATION
  Report Type: Spontaneous
  Country: US (occurrence: US)
  Receive Date: 20200513
  Receipt Date: 20200513
  Transmission Date: 20200714
  Serious: Yes (Death)
  Sender: FDA-Public Use
  Company Number: US-OPTINOSE US, INC-2020OPT000367

PATIENT
  Age: 42 Year
  Sex: Male

DRUGS (1)
  1. XHANCE [Suspect]
     Active Substance: FLUTICASONE PROPIONATE
     Indication: NASAL POLYPS
     Route: 045
     Dates: start: 201910

REACTIONS (1)
  - Homicide [Fatal]

NARRATIVE: CASE EVENT DATE: 20200206
